FAERS Safety Report 19754505 (Version 1)
Quarter: 2021Q3

REPORT INFORMATION
  Report Type: Spontaneous
  Country: US (occurrence: US)
  Receive Date: 20210827
  Receipt Date: 20210827
  Transmission Date: 20211014
  Serious: Yes (Other)
  Sender: FDA-Public Use
  Company Number: None

PATIENT
  Sex: Female

DRUGS (13)
  1. MYALEPT [Suspect]
     Active Substance: METRELEPTIN
     Indication: LIPODYSTROPHY ACQUIRED
     Route: 058
  2. RESTASIS [Concomitant]
     Active Substance: CYCLOSPORINE
  3. BACTERIOSTATIC WATER [Concomitant]
     Active Substance: WATER
  4. NORTRIPTYLINE [Concomitant]
     Active Substance: NORTRIPTYLINE
  5. ATORVASTATIN [Concomitant]
     Active Substance: ATORVASTATIN
  6. OMEPRAZOLE. [Concomitant]
     Active Substance: OMEPRAZOLE
  7. METOPROLOL. [Concomitant]
     Active Substance: METOPROLOL
  8. FENOFIBRATE. [Concomitant]
     Active Substance: FENOFIBRATE
  9. OMEGA?3 ACIDS [Concomitant]
     Active Substance: OMEGA-3 FATTY ACIDS
  10. LOSARTAN. [Concomitant]
     Active Substance: LOSARTAN
  11. LEVOTHYROXINE. [Concomitant]
     Active Substance: LEVOTHYROXINE
  12. MAGNESIUM [Concomitant]
     Active Substance: MAGNESIUM
  13. UNKNOWN PROBIOTIC [Concomitant]

REACTIONS (3)
  - Loss of personal independence in daily activities [None]
  - Device malfunction [None]
  - Heart rate irregular [None]
